FAERS Safety Report 7461178-9 (Version None)
Quarter: 2011Q2

REPORT INFORMATION
  Report Type: 
  Country: None (occurrence: None)
  Receive Date: 20110505
  Receipt Date: 20110425
  Transmission Date: 20111010
  Serious: Yes (Other)
  Sender: FDA-Public Use
  Company Number: US-ASTRAZENECA-2011SE11209

PATIENT
  Age: 86 Year
  Sex: Male

DRUGS (1)
  1. CRESTOR [Suspect]
     Route: 048

REACTIONS (7)
  - CARDIAC FAILURE CONGESTIVE [None]
  - MENTAL DISORDER [None]
  - TERMINAL STATE [None]
  - CHRONIC OBSTRUCTIVE PULMONARY DISEASE [None]
  - PARKINSON'S DISEASE [None]
  - HEARING IMPAIRED [None]
  - CAROTID ARTERY OCCLUSION [None]
